FAERS Safety Report 6430817-3 (Version None)
Quarter: 2009Q4

REPORT INFORMATION
  Report Type: 
  Country: None (occurrence: None)
  Receive Date: 20091106
  Receipt Date: 20091029
  Transmission Date: 20100525
  Serious: Yes (Hospitalization, Other)
  Sender: FDA-Public Use
  Company Number: US-JNJFOC-20091004426

PATIENT
  Age: 49 Year
  Sex: Female

DRUGS (11)
  1. LEVAQUIN [Suspect]
     Indication: PNEUMONIA
     Route: 048
  2. STEROIDS NOS [Suspect]
     Indication: DRUG USE FOR UNKNOWN INDICATION
     Route: 065
  3. NORVASC [Suspect]
     Indication: DRUG USE FOR UNKNOWN INDICATION
     Route: 065
  4. LOPRESSOR [Suspect]
     Indication: DRUG USE FOR UNKNOWN INDICATION
     Route: 048
  5. IRON SULFATETHIAMIN COMPOUND TAB [Concomitant]
     Route: 065
  6. PRILOSEC [Concomitant]
     Route: 065
  7. METHADONE [Concomitant]
     Dosage: EVERY MORNING
     Route: 065
  8. CELEXA [Concomitant]
     Route: 065
  9. ASCORBIC ACID [Concomitant]
     Dosage: EVERY MORNING
     Route: 065
  10. MULTI-VITAMINS [Concomitant]
     Route: 048
  11. IBUPROFEN [Concomitant]
     Route: 065

REACTIONS (5)
  - ARTHRALGIA [None]
  - DYSPNOEA [None]
  - LUNG INFILTRATION [None]
  - OEDEMA PERIPHERAL [None]
  - TENDON RUPTURE [None]
